FAERS Safety Report 7846036-X (Version None)
Quarter: 2011Q4

REPORT INFORMATION
  Report Type: 
  Country: None (occurrence: None)
  Receive Date: 20111025
  Receipt Date: 20111018
  Transmission Date: 20120403
  Serious: Yes (Death)
  Sender: FDA-Public Use
  Company Number: BR-BAXTER-2011BH033008

PATIENT
  Age: 47 Year

DRUGS (4)
  1. MESNA [Concomitant]
     Indication: PROPHYLAXIS
     Route: 065
  2. DOXORUBICIN HCL [Suspect]
     Indication: SARCOMA
     Route: 040
  3. IFOSFAMIDE [Suspect]
     Indication: SARCOMA
     Route: 042
  4. NEUPOGEN [Concomitant]
     Indication: PROPHYLAXIS
     Route: 065

REACTIONS (1)
  - PULMONARY EMBOLISM [None]
